FAERS Safety Report 11493730 (Version 1)
Quarter: 2015Q3

REPORT INFORMATION
  Report Type: Spontaneous
  Country: US (occurrence: None)
  Receive Date: 20150910
  Receipt Date: 20150910
  Transmission Date: 20151125
  Serious: Yes (Hospitalization)
  Sender: FDA-Public Use
  Company Number: None

PATIENT
  Sex: Female

DRUGS (1)
  1. METHOTREXATE [Suspect]
     Active Substance: METHOTREXATE
     Indication: ILL-DEFINED DISORDER
     Route: 058
     Dates: start: 20150610

REACTIONS (3)
  - Chest pain [None]
  - Myalgia [None]
  - Dyspnoea [None]
